FAERS Safety Report 12979064 (Version 1)
Quarter: 2016Q4

REPORT INFORMATION
  Report Type: Spontaneous
  Country: US (occurrence: US)
  Receive Date: 20161128
  Receipt Date: 20161128
  Transmission Date: 20170207
  Serious: No
  Sender: FDA-Public Use
  Company Number: US-GLAXOSMITHKLINE-US2016GSK173778

PATIENT
  Age: 17 Year
  Sex: Female

DRUGS (1)
  1. CAMBIA [Suspect]
     Active Substance: DICLOFENAC POTASSIUM
     Indication: TENSION HEADACHE
     Dosage: 50 MG, QD (1 PACKET WITH 1-2 OUNCES OF WATER, DRINK IMMEDIATELY)
     Route: 048
     Dates: start: 20161102, end: 20161104

REACTIONS (4)
  - Drug administered to patient of inappropriate age [Unknown]
  - Product use issue [Unknown]
  - Drug ineffective for unapproved indication [Unknown]
  - Off label use [Unknown]

NARRATIVE: CASE EVENT DATE: 20161102
